FAERS Safety Report 10077523 (Version 2)
Quarter: 2014Q2

REPORT INFORMATION
  Report Type: Spontaneous
  Country: US (occurrence: US)
  Receive Date: 20140414
  Receipt Date: 20140414
  Transmission Date: 20141212
  Serious: No
  Sender: FDA-Public Use
  Company Number: US-BANPHARM-20131723

PATIENT
  Age: 72 Year
  Sex: Female
  Weight: 88 kg

DRUGS (6)
  1. ALEVE LIQUID GELS 220 MG [Suspect]
     Indication: ARTHRITIS
     Dosage: 1 DF, Q12H,
     Route: 048
     Dates: start: 201308, end: 201309
  2. ALEVE TABLETS [Suspect]
     Indication: ARTHRITIS
     Dosage: 2 DF, Q8H,
  3. LISINOPRIL [Concomitant]
  4. LOVASTATIN [Concomitant]
  5. HYDROTHYACLORIZIDE [Concomitant]
  6. BAYER ASPIRIN 325 MG [Concomitant]
     Indication: CARDIOVASCULAR EVENT PROPHYLAXIS
     Dosage: 1 DF, QD,

REACTIONS (3)
  - Drug effect incomplete [Unknown]
  - Product substitution issue [Unknown]
  - Incorrect drug administration duration [Unknown]
